FAERS Safety Report 21370775 (Version 1)
Quarter: 2022Q3

REPORT INFORMATION
  Report Type: Spontaneous
  Country: US (occurrence: US)
  Receive Date: 20220923
  Receipt Date: 20220923
  Transmission Date: 20221027
  Serious: Yes (Hospitalization, Disabling, Other)
  Sender: FDA-Public Use
  Company Number: US-MERCK-1205USA00966

PATIENT
  Sex: Female
  Weight: 87.528 kg

DRUGS (3)
  1. FOSAMAX [Suspect]
     Active Substance: ALENDRONATE SODIUM
     Indication: Osteoporosis
     Dosage: 70 MG, QW
     Route: 048
     Dates: start: 1995, end: 201003
  2. FOSAMAX PLUS D [Suspect]
     Active Substance: ALENDRONATE SODIUM\CHOLECALCIFEROL
     Indication: Osteoporosis
     Dosage: 70 MG, QW
     Route: 048
     Dates: start: 1995, end: 2011
  3. FOSAMAX [Suspect]
     Active Substance: ALENDRONATE SODIUM
     Indication: Osteoporosis
     Dosage: 70 MG, UNK
     Route: 048
     Dates: start: 1995, end: 201003

REACTIONS (54)
  - Femur fracture [Not Recovered/Not Resolved]
  - Intramedullary rod insertion [Unknown]
  - Biopsy bone marrow [Recovered/Resolved]
  - Low turnover osteopathy [Not Recovered/Not Resolved]
  - Foot operation [Unknown]
  - Shoulder operation [Unknown]
  - Back disorder [Not Recovered/Not Resolved]
  - Invasive breast carcinoma [Unknown]
  - Medical device removal [Unknown]
  - Pneumonia bacterial [Recovering/Resolving]
  - Femur fracture [Unknown]
  - Joint injury [Unknown]
  - Pain [Unknown]
  - Impaired healing [Unknown]
  - Device breakage [Unknown]
  - Foot fracture [Unknown]
  - Foot fracture [Unknown]
  - Foot fracture [Unknown]
  - Foot fracture [Unknown]
  - Foot fracture [Unknown]
  - Foot fracture [Unknown]
  - Hypertension [Unknown]
  - Hypercholesterolaemia [Unknown]
  - Endodontic procedure [Unknown]
  - Foot fracture [Unknown]
  - Osteopetrosis [Unknown]
  - Asthma [Unknown]
  - Ligament sprain [Unknown]
  - Chronic obstructive pulmonary disease [Not Recovered/Not Resolved]
  - Stress fracture [Unknown]
  - Neuritis [Unknown]
  - Hyperlipidaemia [Unknown]
  - Haematuria [Unknown]
  - Micturition urgency [Unknown]
  - Urinary incontinence [Unknown]
  - Spinal pain [Unknown]
  - Scoliosis [Unknown]
  - Breast conserving surgery [Unknown]
  - Biopsy lymph gland [Unknown]
  - Depression [Unknown]
  - Anaemia [Unknown]
  - Osteoporosis [Unknown]
  - Haematuria [Unknown]
  - Laparoscopy [Unknown]
  - Intestinal adhesion lysis [Unknown]
  - Arthroscopic surgery [Unknown]
  - Foot operation [Unknown]
  - Female sterilisation [Unknown]
  - Nervousness [Unknown]
  - Pain in extremity [Unknown]
  - Back pain [Unknown]
  - Gastrooesophageal reflux disease [Unknown]
  - Diarrhoea [Unknown]
  - Headache [Unknown]

NARRATIVE: CASE EVENT DATE: 19960101
